FAERS Safety Report 16438537 (Version 1)
Quarter: 2019Q2

REPORT INFORMATION
  Report Type: Spontaneous
  Country: US (occurrence: US)
  Receive Date: 20190617
  Receipt Date: 20190617
  Transmission Date: 20190711
  Serious: No
  Sender: FDA-Public Use
  Company Number: US-PHARMING-PHAUS2019000400

PATIENT

DRUGS (11)
  1. RUCONEST [Suspect]
     Active Substance: HUMAN C1-ESTERASE INHIBITOR
     Indication: HEREDITARY ANGIOEDEMA
     Dosage: 4200 IU, QOD PRN
     Route: 042
     Dates: start: 20181212
  2. EPINEPHRINE. [Concomitant]
     Active Substance: EPINEPHRINE
  3. TAKHZYRO [Concomitant]
     Active Substance: LANADELUMAB-FLYO
  4. ONDANSETRON [Concomitant]
     Active Substance: ONDANSETRON
  5. HEPARIN [Concomitant]
     Active Substance: HEPARIN SODIUM
  6. FIRAZYR [Concomitant]
     Active Substance: ICATIBANT ACETATE
  7. DIPHENHYDRAMINE. [Concomitant]
     Active Substance: DIPHENHYDRAMINE
  8. VENTOLIN [Concomitant]
     Active Substance: ALBUTEROL SULFATE
  9. PROGESTERONE. [Concomitant]
     Active Substance: PROGESTERONE
  10. VITAMIN D2 [Concomitant]
     Active Substance: ERGOCALCIFEROL
  11. KALBITOR [Concomitant]
     Active Substance: ECALLANTIDE

REACTIONS (2)
  - Hereditary angioedema [Unknown]
  - Expired product administered [Unknown]
